FAERS Safety Report 4804465-2 (Version None)
Quarter: 2005Q4

REPORT INFORMATION
  Report Type: 
  Country: None (occurrence: None)
  Receive Date: 20051018
  Receipt Date: 20051018
  Transmission Date: 20060501
  Serious: Yes (Death)
  Sender: FDA-Public Use
  Company Number: None

PATIENT
  Age: 20 Year
  Sex: Female
  Weight: 54.4316 kg

DRUGS (6)
  1. CYMBALTA [Suspect]
     Indication: BULIMIA NERVOSA
     Dosage: 60 MG
     Dates: start: 19940101, end: 20050401
  2. CYMBALTA [Suspect]
     Indication: MAJOR DEPRESSION
     Dosage: 60 MG
     Dates: start: 19940101, end: 20050401
  3. LEXAPRO [Concomitant]
  4. SEROQUEL [Concomitant]
  5. WELLBUTRIN [Concomitant]
  6. TOPAMAX [Concomitant]

REACTIONS (1)
  - COMPLETED SUICIDE [None]
